FAERS Safety Report 16508167 (Version 4)
Quarter: 2019Q3

REPORT INFORMATION
  Report Type: Spontaneous
  Country: US (occurrence: US)
  Receive Date: 20190702
  Receipt Date: 20190719
  Transmission Date: 20191004
  Serious: Yes (Other)
  Sender: FDA-Public Use
  Company Number: US-LEO PHARMA-319509

PATIENT
  Age: 74 Year
  Sex: Male

DRUGS (2)
  1. PICATO [Suspect]
     Active Substance: INGENOL MEBUTATE
     Route: 061
     Dates: start: 20190521
  2. PICATO [Suspect]
     Active Substance: INGENOL MEBUTATE
     Indication: PRODUCT USED FOR UNKNOWN INDICATION
     Route: 061
     Dates: start: 20190616, end: 20190616

REACTIONS (22)
  - Swelling face [Recovering/Resolving]
  - Rash erythematous [Recovering/Resolving]
  - Dyspnoea [Recovered/Resolved]
  - Swelling [Recovering/Resolving]
  - Eye swelling [Recovering/Resolving]
  - Pyrexia [Recovered/Resolved]
  - Swollen tongue [Recovering/Resolving]
  - Lip blister [Recovering/Resolving]
  - Mucosal inflammation [Recovering/Resolving]
  - Pruritus [Recovering/Resolving]
  - Lethargy [Recovered/Resolved]
  - Eye irritation [Recovering/Resolving]
  - Ocular hyperaemia [Recovering/Resolving]
  - Dysuria [Recovering/Resolving]
  - Stevens-Johnson syndrome [Recovered/Resolved]
  - Pharyngeal swelling [Recovering/Resolving]
  - Mouth ulceration [Recovering/Resolving]
  - Malaise [Recovered/Resolved]
  - Influenza like illness [Recovered/Resolved]
  - Rash maculo-papular [Recovering/Resolving]
  - Feeling abnormal [Not Recovered/Not Resolved]
  - Pain [Not Recovered/Not Resolved]

NARRATIVE: CASE EVENT DATE: 20190617
